FAERS Safety Report 8992071 (Version 2)
Quarter: 2013Q1

REPORT INFORMATION
  Report Type: Spontaneous
  Country: DE (occurrence: DE)
  Receive Date: 20121231
  Receipt Date: 20130129
  Transmission Date: 20140127
  Serious: No
  Sender: FDA-Public Use
  Company Number: PHHY2012DE120981

PATIENT
  Age: 75 Year
  Sex: Male
  Weight: 76 kg

DRUGS (6)
  1. TASIGNA [Suspect]
     Indication: CHRONIC MYELOID LEUKAEMIA
     Dosage: 200 MG, BID
     Route: 048
     Dates: start: 200906
  2. GRIPPOSTAD C [Concomitant]
     Indication: NASOPHARYNGITIS
     Dosage: 3 DF, BID
     Route: 048
     Dates: start: 201212
  3. SAROTEN [Concomitant]
     Indication: DEPRESSION
     Dosage: 50 MG, UNK
     Route: 048
  4. ESIDRIX [Concomitant]
  5. ENALAPRIL [Concomitant]
  6. TAMSULOSIN [Concomitant]

REACTIONS (4)
  - Upper respiratory tract infection [Recovered/Resolved]
  - Nasopharyngitis [Recovered/Resolved]
  - Cough [Recovered/Resolved]
  - Depression [Recovered/Resolved]
